FAERS Safety Report 21450611 (Version 1)
Quarter: 2022Q4

REPORT INFORMATION
  Report Type: Spontaneous
  Country: BR (occurrence: BR)
  Receive Date: 20221013
  Receipt Date: 20221013
  Transmission Date: 20230113
  Serious: Yes (Hospitalization, Other)
  Sender: FDA-Public Use
  Company Number: BR-MLMSERVICE-2022092838223571

PATIENT
  Sex: Female

DRUGS (7)
  1. CARBOPLATIN [Suspect]
     Active Substance: CARBOPLATIN
     Indication: Invasive ductal breast carcinoma
     Dosage: CUMULATIVE DOSE: 1 CYCLICAL, AUC 6
     Route: 042
  2. APREPITANT [Concomitant]
     Active Substance: APREPITANT
     Indication: Invasive ductal breast carcinoma
     Dosage: CUMULATIVE DOSE: 1 CYCLICAL
  3. LIPEGFILGRASTIM [Concomitant]
     Active Substance: LIPEGFILGRASTIM
     Indication: Invasive ductal breast carcinoma
     Dosage: CUMULATIVE DOSE: 1 CYCLICAL
  4. GOSERELIN ACETATE [Concomitant]
     Active Substance: GOSERELIN ACETATE
     Indication: Invasive ductal breast carcinoma
     Dosage: CUMULATIVE DOSE: 1 CYCLICAL
  5. PERTUZUMAB [Concomitant]
     Active Substance: PERTUZUMAB
     Indication: Invasive ductal breast carcinoma
     Dosage: CUMULATIVE DOSE: 1 CYCLICAL
     Route: 042
  6. TRASTUZUMAB [Concomitant]
     Active Substance: TRASTUZUMAB
     Indication: Invasive ductal breast carcinoma
     Dosage: CUMULATIVE DOSE: 1 CYCLICAL
  7. DOCETAXEL [Concomitant]
     Active Substance: DOCETAXEL
     Indication: Invasive ductal breast carcinoma
     Dosage: CUMULATIVE DOSE: 1 CYCLICAL
     Route: 042

REACTIONS (5)
  - Ureteric obstruction [Recovered/Resolved]
  - Haematuria [Recovered/Resolved]
  - Renal impairment [Recovered/Resolved]
  - Anaemia [Recovered/Resolved]
  - Off label use [Unknown]
